FAERS Safety Report 18438374 (Version 1)
Quarter: 2020Q4

REPORT INFORMATION
  Report Type: Spontaneous
  Country: US (occurrence: US)
  Receive Date: 20201029
  Receipt Date: 20201029
  Transmission Date: 20210114
  Serious: Yes (Other)
  Sender: FDA-Public Use
  Company Number: US-ROCHE-2703716

PATIENT
  Sex: Female

DRUGS (1)
  1. ESBRIET [Suspect]
     Active Substance: PIRFENIDONE
     Indication: IDIOPATHIC PULMONARY FIBROSIS
     Dosage: TAKE 1 TABLET 3 TIMES DAILY 1 WEEK, THEN 2 TABS 3 TIMES DAILY 1 WEEK, THEN 3 TABS 3 TIMES DAILY WITH
     Route: 048

REACTIONS (6)
  - Vomiting [Unknown]
  - Headache [Unknown]
  - Impaired driving ability [Unknown]
  - Nausea [Unknown]
  - Dementia [Unknown]
  - Pain [Unknown]
